FAERS Safety Report 5271753-8 (Version None)
Quarter: 2007Q1

REPORT INFORMATION
  Report Type: 
  Country: None (occurrence: None)
  Receive Date: 20070316
  Receipt Date: 20070309
  Transmission Date: 20070707
  Serious: Yes (Hospitalization)
  Sender: FDA-Public Use
  Company Number: 237770

PATIENT
  Age: 56 Year
  Sex: Male
  Weight: 97.1 kg

DRUGS (13)
  1. XOLAIR [Suspect]
     Indication: ASTHMA
     Dosage: Q4W, SUBCUTANEOUS
     Route: 058
     Dates: start: 20061001
  2. PAXIL [Concomitant]
  3. CLONIDINE [Concomitant]
  4. KLONOPIN [Concomitant]
  5. NEXIUM [Concomitant]
  6. ADVAIR DISKUS 100/50 [Concomitant]
  7. SINGULAIR [Concomitant]
  8. PREDNISONE TAB [Concomitant]
  9. MUCOMYST [Concomitant]
  10. PULMICORT [Concomitant]
  11. ALBUTEROL (ALBUTEROL/ALBUTEROL SULFATE) [Concomitant]
  12. STARLITE (UNK INGREDIENTS) (GENERIC COMPONENT(S)NOT KNOWN) [Concomitant]
  13. LIFEGUARD VITAMINS (UNK INGREDIENTS) (VITAMINS NOS) [Concomitant]

REACTIONS (2)
  - ASTHMA [None]
  - LOBAR PNEUMONIA [None]
